FAERS Safety Report 8513263-8 (Version None)
Quarter: 2012Q3

REPORT INFORMATION
  Report Type: 
  Country: None (occurrence: None)
  Receive Date: 20120716
  Receipt Date: 20120702
  Transmission Date: 20120928
  Serious: Yes (Hospitalization)
  Sender: FDA-Public Use
  Company Number: KR-ELI_LILLY_AND_COMPANY-KR201206007678

PATIENT
  Age: 41 Year
  Sex: Female

DRUGS (3)
  1. DRUG USED IN DIABETES [Concomitant]
     Indication: TYPE 2 DIABETES MELLITUS
  2. BYETTA [Suspect]
     Dosage: 10 UG, BID
     Dates: start: 20120501
  3. BYETTA [Suspect]
     Indication: TYPE 2 DIABETES MELLITUS
     Dosage: 5 UG, BID
     Route: 058
     Dates: start: 20120501, end: 20120501

REACTIONS (5)
  - VOMITING [None]
  - MYALGIA [None]
  - PAIN IN EXTREMITY [None]
  - HEADACHE [None]
  - FALL [None]
